FAERS Safety Report 5700620-8 (Version None)
Quarter: 2008Q2

REPORT INFORMATION
  Report Type: 
  Country: None (occurrence: None)
  Receive Date: 20080410
  Receipt Date: 20080401
  Transmission Date: 20081010
  Serious: Yes (Hospitalization)
  Sender: FDA-Public Use
  Company Number: FR-AVENTIS-200811190FR

PATIENT
  Age: 52 Year
  Sex: Female

DRUGS (3)
  1. PYOSTACINE [Suspect]
     Route: 048
     Dates: start: 20080204, end: 20080204
  2. KETEK [Suspect]
     Route: 048
     Dates: start: 20080205, end: 20080205
  3. FLANID [Suspect]
     Route: 048
     Dates: start: 20080204, end: 20080204

REACTIONS (3)
  - FALL [None]
  - NAUSEA [None]
  - RASH GENERALISED [None]
